FAERS Safety Report 8151571-3 (Version None)
Quarter: 2012Q1

REPORT INFORMATION
  Report Type: 
  Country: None (occurrence: None)
  Receive Date: 20120220
  Receipt Date: 20120209
  Transmission Date: 20120608
  Serious: Yes (Death, Hospitalization, Other)
  Sender: FDA-Public Use
  Company Number: DE-ROCHE-732262

PATIENT
  Sex: Female
  Weight: 64 kg

DRUGS (5)
  1. ACTEMRA [Suspect]
     Route: 042
  2. PARATHYROID HORMONE [Concomitant]
     Indication: OSTEOPOROSIS
  3. ACTEMRA [Suspect]
     Indication: RHEUMATOID ARTHRITIS
     Route: 042
     Dates: start: 20100713, end: 20100810
  4. VITAMIN D [Concomitant]
     Indication: OSTEOPOROSIS
  5. CORTICOSTEROID NOS [Concomitant]
     Indication: RHEUMATOID ARTHRITIS
     Dosage: UP TO 50 MG DAILY

REACTIONS (3)
  - OVARIAN CANCER [None]
  - CYSTITIS [None]
  - PHARYNGEAL ABSCESS [None]
